FAERS Safety Report 19363960 (Version 1)
Quarter: 2021Q2

REPORT INFORMATION
  Report Type: Spontaneous
  Country: ES (occurrence: ES)
  Receive Date: 20210603
  Receipt Date: 20210603
  Transmission Date: 20210717
  Serious: Yes (Hospitalization, Other)
  Sender: FDA-Public Use
  Company Number: ES-SA-2021SA177702

PATIENT
  Sex: Female
  Weight: 67 kg

DRUGS (1)
  1. LANTUS [Suspect]
     Active Substance: INSULIN GLARGINE
     Indication: TYPE 2 DIABETES MELLITUS
     Dosage: 10 IU
     Route: 058

REACTIONS (4)
  - Drug ineffective [Unknown]
  - Hyperglycaemia [Unknown]
  - Intentional product use issue [Unknown]
  - Pancreatitis [Unknown]
